FAERS Safety Report 6389016-6 (Version None)
Quarter: 2009Q4

REPORT INFORMATION
  Report Type: 
  Country: None (occurrence: None)
  Receive Date: 20091001
  Receipt Date: 20090915
  Transmission Date: 20100525
  Serious: Yes (Hospitalization, Other)
  Sender: FDA-Public Use
  Company Number: 2007S1007578

PATIENT
  Age: 66 Year
  Sex: Female
  Weight: 79.8331 kg

DRUGS (2)
  1. PHOSPHOSODA FLAVOR NOT SPECIFIED [Suspect]
     Indication: COLONOSCOPY
     Dosage: PO
     Route: 048
     Dates: start: 20040407, end: 20050407
  2. DIOVAN HCT [Concomitant]

REACTIONS (6)
  - FEELING ABNORMAL [None]
  - HYPOPHAGIA [None]
  - MULTIPLE INJURIES [None]
  - NAUSEA [None]
  - OLIGODIPSIA [None]
  - RENAL FAILURE ACUTE [None]
